FAERS Safety Report 6247244-4 (Version None)
Quarter: 2009Q2

REPORT INFORMATION
  Report Type: 
  Country: None (occurrence: None)
  Receive Date: 20090626
  Receipt Date: 20090616
  Transmission Date: 20091009
  Serious: Yes (Life-Threatening)
  Sender: FDA-Public Use
  Company Number: B0579184A

PATIENT
  Age: 45 Year
  Sex: Female
  Weight: 89 kg

DRUGS (3)
  1. ORLISTAT [Suspect]
     Route: 048
     Dates: start: 20090603
  2. MEBEVERINE [Concomitant]
     Route: 048
  3. PARACETAMOL [Concomitant]

REACTIONS (1)
  - ANAPHYLACTIC REACTION [None]
